FAERS Safety Report 4367846-X (Version None)
Quarter: 2004Q2

REPORT INFORMATION
  Report Type: 
  Country: None (occurrence: None)
  Receive Date: 20040601
  Receipt Date: 20040601
  Transmission Date: 20050107
  Serious: Yes (Hospitalization)
  Sender: FDA-Public Use
  Company Number: None

PATIENT
  Age: 46 Year
  Sex: Female
  Weight: 80.4 kg

DRUGS (4)
  1. RANITIDINE [Suspect]
     Indication: GASTROOESOPHAGEAL REFLUX DISEASE
     Dosage: 150 MG X 1 PO, 300 MG X 1 PO
     Route: 048
     Dates: start: 20031003
  2. RANITIDINE [Suspect]
     Indication: GASTROOESOPHAGEAL REFLUX DISEASE
     Dosage: 150 MG X 1 PO, 300 MG X 1 PO
     Route: 048
     Dates: start: 20031004
  3. CIMETIDINE HCL [Suspect]
     Indication: HYPERSENSITIVITY
     Dosage: 300 MG IV X 3 DOSES
     Route: 042
     Dates: start: 20031005
  4. LEVOTHYROXINE SODIUM [Concomitant]

REACTIONS (4)
  - ANGIONEUROTIC OEDEMA [None]
  - OROPHARYNGEAL SWELLING [None]
  - RASH [None]
  - URTICARIA GENERALISED [None]
